FAERS Safety Report 23533334 (Version 1)
Quarter: 2024Q1

REPORT INFORMATION
  Report Type: Spontaneous
  Country: FR (occurrence: FR)
  Receive Date: 20240216
  Receipt Date: 20240216
  Transmission Date: 20240410
  Serious: Yes (Hospitalization, Other)
  Sender: FDA-Public Use
  Company Number: None

PATIENT
  Age: 88 Year
  Sex: Male
  Weight: 80 kg

DRUGS (5)
  1. CYCLOPHOSPHAMIDE [Suspect]
     Active Substance: CYCLOPHOSPHAMIDE
     Indication: B-cell lymphoma stage IV
     Dosage: 1180 MG, 1 X CYCLICAL, CYCLE-DEPENDENT
     Route: 042
     Dates: start: 20231103
  2. MESNA [Suspect]
     Active Substance: MESNA
     Indication: B-cell lymphoma stage IV
     Dosage: 1 G
     Route: 042
     Dates: start: 20231103
  3. ETOPOPHOS [Suspect]
     Active Substance: ETOPOSIDE PHOSPHATE
     Indication: B-cell lymphoma stage IV
     Dosage: 196 MG, 1 X CYCLICAL, CYCLE-DEPENDENT
     Route: 042
     Dates: start: 20231103
  4. DOXORUBICIN [Suspect]
     Active Substance: DOXORUBICIN
     Indication: B-cell lymphoma stage IV
     Dosage: 40 MG, 1 X CYCLICAL, CYCLE-DEPENDENT, LYOPHILIZATE FOR PARENTERAL USE IN BOTTLE
     Route: 042
     Dates: start: 20231103
  5. MABTHERA [Suspect]
     Active Substance: RITUXIMAB
     Indication: B-cell lymphoma stage IV
     Dosage: 700 MG, 1 X CYCLICAL, CYCLE-DEPENDENT, SOLUTION TO BE DILUTED FOR PERFUSION, MAMMAL/ HAMSTER/CHO CEL
     Route: 042
     Dates: start: 20231103

REACTIONS (1)
  - Hepatic cytolysis [Recovering/Resolving]

NARRATIVE: CASE EVENT DATE: 20231215
